FAERS Safety Report 9898987 (Version 2)
Quarter: 2014Q1

REPORT INFORMATION
  Report Type: Report from Study
  Country: US (occurrence: US)
  Receive Date: 20140214
  Receipt Date: 20140214
  Transmission Date: 20141002
  Serious: Yes (Death, Other)
  Sender: FDA-Public Use
  Company Number: US-TEVA-458588USA

PATIENT
  Sex: Female

DRUGS (11)
  1. CLOZAPINE [Suspect]
     Indication: SCHIZOAFFECTIVE DISORDER
     Route: 048
  2. GABAPENTIN [Concomitant]
     Dosage: 1800 MILLIGRAM DAILY;
  3. HYDROCHLOROTHIAZIDE [Concomitant]
  4. IBUPROFEN [Concomitant]
     Dosage: 2400 MILLIGRAM DAILY;
  5. TOPAMAX [Concomitant]
     Dosage: 50 MILLIGRAM DAILY;
  6. VITAMIN E [Concomitant]
  7. BENZTROPEINE [Concomitant]
  8. LORAZEPAM [Concomitant]
  9. EFFEXOR-XR [Concomitant]
  10. LAMICTAL [Concomitant]
  11. OXYCODONE/APAP [Concomitant]
     Dosage: PRN

REACTIONS (1)
  - Cardiac disorder [Fatal]
